APPROVED DRUG PRODUCT: PEPCID AC
Active Ingredient: FAMOTIDINE
Strength: 10MG
Dosage Form/Route: TABLET;ORAL
Application: N020325 | Product #001
Applicant: KENVUE BRANDS LLC
Approved: Apr 28, 1995 | RLD: Yes | RS: No | Type: OTC